FAERS Safety Report 9508748 (Version 1)
Quarter: 2013Q1

REPORT INFORMATION
  Report Type: Spontaneous
  Country: US (occurrence: None)
  Receive Date: 20130305
  Receipt Date: 20130305
  Transmission Date: 20140127
  Serious: Yes (Other)
  Sender: FDA-Public Use
  Company Number: 163-21880-12090960

PATIENT
  Age: 60 Year
  Sex: Male
  Weight: 138.35 kg

DRUGS (16)
  1. REVLIMID (LENALIDOMIDE) (CAPSULES) [Suspect]
     Indication: PLASMA CELL MYELOMA
     Dosage: 18.75 MG, 21 IN 28 D, PO
     Route: 048
     Dates: start: 20120801
  2. ACYCLOVIR [Concomitant]
  3. ASPIRIN (ACETYLSALICYLIC ACID) [Concomitant]
  4. ATIVAN (LORAZEPAM) [Concomitant]
  5. DEXAMETHASONE [Concomitant]
  6. LYRICA (PREGABALIN) [Concomitant]
  7. NORVASC (AMLODIPINE BESILATE) [Concomitant]
  8. ONDANSETRON [Concomitant]
  9. OPANA (OXYMORPHONE HYDROCHLORIDE) [Concomitant]
  10. PAXIL (PAROXETINE HYDROCHLORIDE) [Concomitant]
  11. PRILOSEC [Concomitant]
  12. REMERON (MIRTAZAPINE) [Concomitant]
  13. REQUIP (ROPINIROLE HYDROCHLORIDE) [Concomitant]
  14. TRIAZOLAM [Concomitant]
  15. VELCADE [Concomitant]
  16. ZOMETA (ZOLEDRONIC ACID) [Concomitant]

REACTIONS (3)
  - Tooth disorder [None]
  - Vitamin D decreased [None]
  - Tremor [None]
